FAERS Safety Report 6571049-8 (Version None)
Quarter: 2010Q1

REPORT INFORMATION
  Report Type: 
  Country: None (occurrence: None)
  Receive Date: 20100203
  Receipt Date: 20100203
  Transmission Date: 20100710
  Serious: Yes (Death)
  Sender: FDA-Public Use
  Company Number: None

PATIENT
  Age: 66 Year
  Sex: Male
  Weight: 69.4003 kg

DRUGS (2)
  1. RISPERIDONE [Suspect]
     Indication: DEMENTIA ALZHEIMER'S TYPE
     Dosage: .5 MG TWICE DAILY PO
     Route: 048
     Dates: start: 20090905, end: 20091010
  2. RISPERIDONE [Suspect]
     Indication: STRESS
     Dosage: .5 MG TWICE DAILY PO
     Route: 048
     Dates: start: 20090905, end: 20091010

REACTIONS (2)
  - DEMENTIA [None]
  - UNEVALUABLE EVENT [None]
